FAERS Safety Report 6097887-6 (Version None)
Quarter: 2009Q1

REPORT INFORMATION
  Report Type: 
  Country: None (occurrence: None)
  Receive Date: 20090227
  Receipt Date: 20090218
  Transmission Date: 20090719
  Serious: Yes (Life-Threatening, Hospitalization)
  Sender: FDA-Public Use
  Company Number: PHHY2009JP01577

PATIENT
  Age: 33 Year
  Sex: Male
  Weight: 69 kg

DRUGS (4)
  1. DIOVAN [Suspect]
     Indication: MALIGNANT HYPERTENSION
     Dosage: 80 MG, ONCE/SINGLE
     Route: 048
     Dates: start: 20070301
  2. DIOVAN [Suspect]
     Dosage: 40 MG, UNK
     Route: 048
     Dates: start: 20070604, end: 20070609
  3. DIOVAN [Suspect]
     Dosage: 80 MG, UNK
     Route: 048
     Dates: start: 20070609
  4. AMLODIPINE BESYLATE [Concomitant]
     Dosage: 5MG
     Route: 048

REACTIONS (4)
  - ABDOMINAL PAIN [None]
  - COMPUTERISED TOMOGRAM ABNORMAL [None]
  - INTESTINAL ISCHAEMIA [None]
  - MALIGNANT HYPERTENSION [None]
